FAERS Safety Report 14133157 (Version 1)
Quarter: 2017Q4

REPORT INFORMATION
  Report Type: Spontaneous
  Country: ES (occurrence: ES)
  Receive Date: 20171027
  Receipt Date: 20171027
  Transmission Date: 20180321
  Serious: Yes (Hospitalization)
  Sender: FDA-Public Use
  Company Number: ES-ACCORD-060355

PATIENT
  Age: 39 Year
  Sex: Female
  Weight: 62 kg

DRUGS (9)
  1. PALONOSETRON ACCORD [Suspect]
     Active Substance: PALONOSETRON HYDROCHLORIDE
     Indication: PRODUCT USED FOR UNKNOWN INDICATION
     Dosage: STRENGTH: 250 MICROGRAMS; 1 VIAL?DOSE: 250 MICROGRAMS SINGLE DOSE
     Route: 042
     Dates: start: 20170831, end: 20170831
  2. DEXAMETHASONE KERN PHARMA [Suspect]
     Active Substance: DEXAMETHASONE
     Indication: PRODUCT USED FOR UNKNOWN INDICATION
     Dosage: STRENGTH: 4 MG/ML; 100 AMPOULES?DOSE: 12 MG SINGLE DOSE
     Route: 042
     Dates: start: 20170831, end: 20170831
  3. DIAZEPAM. [Concomitant]
     Active Substance: DIAZEPAM
  4. OMEPRAZOLE. [Concomitant]
     Active Substance: OMEPRAZOLE
  5. DOCETAXEL ACCORD [Suspect]
     Active Substance: DOCETAXEL
     Indication: BREAST CANCER
     Dosage: STRENGTH: 160 MG/8 ML.?DOSE: 110 MG EVERY 21 DAYS
     Route: 042
     Dates: start: 20170831, end: 20170831
  6. ACFOL [Concomitant]
     Active Substance: FOLIC ACID
  7. POLARAMINE [Suspect]
     Active Substance: DEXCHLORPHENIRAMINE MALEATE
     Indication: PRODUCT USED FOR UNKNOWN INDICATION
     Dosage: STRENGTH: 5 MG/ML; 5 AMPOULES 1 ML?DOSE: 5 MG SINGLE DOSE
     Route: 042
     Dates: start: 20170831, end: 20170831
  8. TARDYFERON [Concomitant]
     Active Substance: FERROUS SULFATE
  9. ESCITALOPRAM [Concomitant]
     Active Substance: ESCITALOPRAM OXALATE

REACTIONS (1)
  - Epilepsy [Recovered/Resolved]

NARRATIVE: CASE EVENT DATE: 20170831
